FAERS Safety Report 5283905-1 (Version None)
Quarter: 2007Q1

REPORT INFORMATION
  Report Type: 
  Country: None (occurrence: None)
  Receive Date: 20070327
  Receipt Date: 20070319
  Transmission Date: 20070707
  Serious: Yes (Death)
  Sender: FDA-Public Use
  Company Number: 2007-01466

PATIENT
  Age: 28 Year

DRUGS (4)
  1. VERAPAMIL [Suspect]
  2. CHLORPHENIRAMINE MALEATE (WATSON LABORATORIES) (CHLORPHENIRAMINE MALEA [Suspect]
  3. ACETAMINOPHEN [Suspect]
  4. BENZODIAZEPINE DERIVATIVES (BNZODIAZEPINE DERIVATIVES) [Suspect]

REACTIONS (1)
  - CARDIO-RESPIRATORY ARREST [None]
